FAERS Safety Report 11160278 (Version 7)
Quarter: 2019Q2

REPORT INFORMATION
  Report Type: Report from Study
  Country: BR (occurrence: BR)
  Receive Date: 20150603
  Receipt Date: 20190626
  Transmission Date: 20190711
  Serious: Yes (Other)
  Sender: FDA-Public Use
  Company Number: PHHY2015BR066359

PATIENT
  Age: 56 Year
  Sex: Female
  Weight: 62 kg

DRUGS (19)
  1. SANDOSTATIN LAR DEPOT [Suspect]
     Active Substance: OCTREOTIDE ACETATE
     Dosage: 20 MG, QMO
     Route: 030
     Dates: start: 20190307
  2. PREDNISONE. [Concomitant]
     Active Substance: PREDNISONE
     Indication: HORMONE LEVEL ABNORMAL
     Dosage: 1 DF, QD
     Route: 048
     Dates: start: 2010
  3. LOSARTAN. [Concomitant]
     Active Substance: LOSARTAN
     Dosage: 1 DF, UNK
     Route: 048
     Dates: start: 201803
  4. PURAN [Concomitant]
     Active Substance: LEVOTHYROXINE SODIUM
     Dosage: 1 DF, QD
     Route: 048
     Dates: start: 2014
  5. PURAN [Concomitant]
     Active Substance: LEVOTHYROXINE SODIUM
     Indication: HYPOTHYROIDISM
     Dosage: 1 DF/THURSDAY,FRIDAY, SATURDAY AND SUNDAY
     Route: 048
     Dates: start: 2012
  6. SANDOSTATIN LAR DEPOT [Suspect]
     Active Substance: OCTREOTIDE ACETATE
     Dosage: 20 MG, UNK
     Route: 030
     Dates: start: 2011
  7. CABERGOLINA [Concomitant]
     Active Substance: CABERGOLINE
     Dosage: 5 MG, QW
     Route: 048
     Dates: start: 201311
  8. CABERGOLINA [Concomitant]
     Active Substance: CABERGOLINE
     Dosage: 10 MG, QW
     Route: 048
     Dates: start: 2014
  9. LOSARTAN. [Concomitant]
     Active Substance: LOSARTAN
     Indication: BLOOD PRESSURE INCREASED
     Dosage: 2 DF, QD
     Route: 048
     Dates: start: 2012
  10. SIMVASTATIN. [Concomitant]
     Active Substance: SIMVASTATIN
     Dosage: 1 DF, QD
     Route: 048
     Dates: start: 2010
  11. CABERGOLINA [Concomitant]
     Active Substance: CABERGOLINE
     Indication: ACROMEGALY
     Dosage: 0.5 MG, QW2
     Route: 048
     Dates: start: 2012
  12. PREDNISONE. [Concomitant]
     Active Substance: PREDNISONE
     Indication: ACROMEGALY
  13. PREDNISONE. [Concomitant]
     Active Substance: PREDNISONE
     Indication: CORTISOL ABNORMAL
     Dosage: HALF TABLET , QD (2 MONTHS AGO)
     Route: 048
  14. LEVOTIROXINA [Concomitant]
     Active Substance: LEVOTHYROXINE
     Indication: PRODUCT USED FOR UNKNOWN INDICATION
     Route: 065
  15. SANDOSTATIN LAR DEPOT [Suspect]
     Active Substance: OCTREOTIDE ACETATE
     Indication: ACROMEGALY
     Dosage: 30 MG, QMO (EVERY 28 DAYS) (1 AMPOULE)
     Route: 030
     Dates: start: 201101
  16. OMEPRAZOLE. [Concomitant]
     Active Substance: OMEPRAZOLE
     Indication: GASTRIC DISORDER
     Dosage: 1 DF, QD
     Route: 048
     Dates: start: 2005
  17. OMEPRAZOLE. [Concomitant]
     Active Substance: OMEPRAZOLE
     Dosage: 1 DF, QD
     Route: 048
     Dates: start: 2012
  18. SIMVASTATIN. [Concomitant]
     Active Substance: SIMVASTATIN
     Indication: BLOOD CHOLESTEROL INCREASED
     Dosage: 1 DF, QD
     Route: 048
     Dates: start: 2008
  19. LEVOTHYROXINE. [Concomitant]
     Active Substance: LEVOTHYROXINE
     Indication: PRODUCT USED FOR UNKNOWN INDICATION
     Dosage: 150 MG, QD
     Route: 048
     Dates: start: 2013

REACTIONS (32)
  - Headache [Not Recovered/Not Resolved]
  - Head discomfort [Not Recovered/Not Resolved]
  - Injection site pain [Unknown]
  - Weight increased [Recovering/Resolving]
  - Pain [Unknown]
  - Fibromyalgia [Not Recovered/Not Resolved]
  - Needle issue [Not Recovered/Not Resolved]
  - Hypertension [Unknown]
  - Application site mass [Unknown]
  - Product storage error [Unknown]
  - Arthralgia [Recovered/Resolved]
  - Nervous system disorder [Unknown]
  - Vision blurred [Unknown]
  - Weight decreased [Unknown]
  - Dizziness [Not Recovered/Not Resolved]
  - Insulin-like growth factor increased [Unknown]
  - Incorrect dose administered [Unknown]
  - Somnolence [Not Recovered/Not Resolved]
  - Hypertension [Recovered/Resolved]
  - Diabetes mellitus [Recovering/Resolving]
  - Fatigue [Unknown]
  - Blood prolactin abnormal [Unknown]
  - Myalgia [Recovered/Resolved]
  - Malaise [Not Recovered/Not Resolved]
  - Blood pressure abnormal [Unknown]
  - Pain in extremity [Unknown]
  - Needle issue [Recovered/Resolved with Sequelae]
  - Wrong technique in product usage process [Unknown]
  - Labyrinthitis [Not Recovered/Not Resolved]
  - Optic nerve disorder [Unknown]
  - Foot deformity [Not Recovered/Not Resolved]
  - Drug ineffective [Unknown]

NARRATIVE: CASE EVENT DATE: 2011
